FAERS Safety Report 4875512-7 (Version None)
Quarter: 2006Q1

REPORT INFORMATION
  Report Type: 
  Country: None (occurrence: None)
  Receive Date: 20060109
  Receipt Date: 20050823
  Transmission Date: 20060701
  Serious: Yes (Other)
  Sender: FDA-Public Use
  Company Number: PHEH2005US09407

PATIENT
  Age: 63 Year
  Sex: Male

DRUGS (4)
  1. ZOMETA [Suspect]
     Indication: MULTIPLE MYELOMA
     Dosage: 4MG Q4WK
     Route: 042
     Dates: start: 20050121, end: 20051019
  2. DECADRON [Concomitant]
     Indication: MULTIPLE MYELOMA
     Dosage: 40MG QD X4DAYS
     Dates: start: 20050201, end: 20050801
  3. THALIDOMIDE [Concomitant]
     Indication: MULTIPLE MYELOMA
     Dosage: 200MG QD
     Dates: start: 20050201, end: 20050801
  4. VELCADE [Concomitant]
     Indication: MULTIPLE MYELOMA
     Dosage: 1.3MG/M2 D1,4,8,11
     Dates: start: 20050801, end: 20050901

REACTIONS (3)
  - BONE DISORDER [None]
  - OSTEONECROSIS [None]
  - PULMONARY EMBOLISM [None]
